FAERS Safety Report 6234043-2 (Version None)
Quarter: 2009Q2

REPORT INFORMATION
  Report Type: 
  Country: None (occurrence: None)
  Receive Date: 20090618
  Receipt Date: 20090602
  Transmission Date: 20091009
  Serious: Yes (Hospitalization)
  Sender: FDA-Public Use
  Company Number: PHHY2009FR23827

PATIENT
  Sex: Female

DRUGS (7)
  1. FRACTAL [Suspect]
     Indication: HYPERCHOLESTEROLAEMIA
     Dosage: 40 MG, QD
     Route: 048
     Dates: end: 20090116
  2. SPIRONOLACTONE [Concomitant]
     Dosage: UNK
  3. NAFTILUX [Concomitant]
     Dosage: UNK
  4. TAMIK [Concomitant]
     Dosage: UNK
  5. DRIPTANE [Concomitant]
     Dosage: UNK
  6. CLONAZEPAM [Concomitant]
     Dosage: UNK
  7. SANMIGRAN [Concomitant]
     Dosage: UNK

REACTIONS (17)
  - BIOPSY SKIN ABNORMAL [None]
  - C-REACTIVE PROTEIN INCREASED [None]
  - DERMATITIS [None]
  - ECTHYMA [None]
  - ECZEMA [None]
  - ERYTHEMA ANNULARE [None]
  - HYPERKERATOSIS PALMARIS AND PLANTARIS [None]
  - ICHTHYOSIS ACQUIRED [None]
  - KERATOSIS FOLLICULAR [None]
  - LYMPHOPENIA [None]
  - PRURITUS [None]
  - RED BLOOD CELL SEDIMENTATION RATE INCREASED [None]
  - SHOCK [None]
  - SKIN LESION [None]
  - SKIN PLAQUE [None]
  - TOXIC SKIN ERUPTION [None]
  - URINARY TRACT INFECTION [None]
